FAERS Safety Report 8160334-4 (Version None)
Quarter: 2012Q1

REPORT INFORMATION
  Report Type: 
  Country: None (occurrence: None)
  Receive Date: 20120223
  Receipt Date: 20120216
  Transmission Date: 20120608
  Serious: Yes (Hospitalization)
  Sender: FDA-Public Use
  Company Number: US-ABBOTT-12P-163-0905377-00

PATIENT
  Sex: Female
  Weight: 76.272 kg

DRUGS (4)
  1. HUMIRA [Suspect]
     Indication: CROHN'S DISEASE
     Dates: start: 20101001, end: 20110201
  2. HUMIRA [Suspect]
  3. HUMIRA [Suspect]
     Indication: COLITIS ULCERATIVE
     Dates: start: 20110501
  4. IRON [Concomitant]
     Indication: MINERAL SUPPLEMENTATION

REACTIONS (8)
  - ABDOMINAL PAIN [None]
  - INFECTION [None]
  - CROHN'S DISEASE [None]
  - INTESTINAL STENOSIS [None]
  - ABSCESS [None]
  - OFF LABEL USE [None]
  - NAUSEA [None]
  - INTESTINAL OBSTRUCTION [None]
